FAERS Safety Report 14179378 (Version 2)
Quarter: 2017Q4

REPORT INFORMATION
  Report Type: Spontaneous
  Country: GB (occurrence: GB)
  Receive Date: 20171110
  Receipt Date: 20171115
  Transmission Date: 20180321
  Serious: Yes (Disabling, Other)
  Sender: FDA-Public Use
  Company Number: GB-PFIZER INC-2017476928

PATIENT
  Age: 46 Year
  Sex: Female
  Weight: 101.6 kg

DRUGS (5)
  1. AMITRIPTYLINE [Concomitant]
     Active Substance: AMITRIPTYLINE
     Dosage: UNK
  2. LONGTEC [Concomitant]
     Active Substance: OXYCODONE HYDROCHLORIDE
     Dosage: UNK
  3. PREGABALIN. [Suspect]
     Active Substance: PREGABALIN
     Indication: NEUROPATHY PERIPHERAL
     Dosage: 75 MG, 2X/DAY
     Route: 048
     Dates: start: 20160909, end: 20170920
  4. CYCLIZINE HYDROCHLORIDE [Concomitant]
     Active Substance: CYCLIZINE HYDROCHLORIDE
     Dosage: UNK
  5. ELLESTE DUET [Concomitant]
     Dosage: UNK

REACTIONS (38)
  - Anxiety [Recovering/Resolving]
  - Tension [Recovering/Resolving]
  - Dyspnoea [Recovering/Resolving]
  - Headache [Unknown]
  - Insomnia [Unknown]
  - Feeling hot [Unknown]
  - Apathy [Recovering/Resolving]
  - Vision blurred [Recovered/Resolved]
  - Hyperhidrosis [Not Recovered/Not Resolved]
  - Vomiting [Unknown]
  - Restlessness [Unknown]
  - Fatigue [Not Recovered/Not Resolved]
  - Personality change [Recovering/Resolving]
  - Chills [Unknown]
  - Abnormal weight gain [Not Recovered/Not Resolved]
  - Drug withdrawal syndrome [Not Recovered/Not Resolved]
  - Psychiatric symptom [Recovering/Resolving]
  - Chest pain [Unknown]
  - Hyperhidrosis [Unknown]
  - Fall [Unknown]
  - Aphasia [Unknown]
  - Diarrhoea [Unknown]
  - Alopecia [Recovering/Resolving]
  - Hypoaesthesia [Unknown]
  - Flat affect [Unknown]
  - Neuralgia [Recovering/Resolving]
  - Gait disturbance [Unknown]
  - Asocial behaviour [Unknown]
  - Muscle tightness [Unknown]
  - Nausea [Unknown]
  - Paraesthesia [Recovering/Resolving]
  - Feeling abnormal [Not Recovered/Not Resolved]
  - Depression [Recovered/Resolved]
  - Paraesthesia [Unknown]
  - Condition aggravated [Unknown]
  - Pain in jaw [Unknown]
  - Decreased appetite [Unknown]
  - Feeling of despair [Unknown]

NARRATIVE: CASE EVENT DATE: 20161210
